FAERS Safety Report 16996347 (Version 4)
Quarter: 2020Q1

REPORT INFORMATION
  Report Type: Spontaneous
  Country: US (occurrence: US)
  Receive Date: 20191105
  Receipt Date: 20200116
  Transmission Date: 20200409
  Serious: Yes (Other)
  Sender: FDA-Public Use
  Company Number: US-PFIZER INC-2018429723

PATIENT
  Age: 66 Year
  Sex: Female
  Weight: 67.12 kg

DRUGS (5)
  1. RESTASIS [Suspect]
     Active Substance: CYCLOSPORINE
     Indication: SJOGREN^S SYNDROME
     Dosage: UNK, TWICE A DAY
  2. SALSALATE. [Concomitant]
     Active Substance: SALSALATE
     Indication: RHEUMATOID ARTHRITIS
     Dosage: 750 MG, 2X/DAY
  3. XELJANZ [Suspect]
     Active Substance: TOFACITINIB CITRATE
     Indication: RHEUMATOID ARTHRITIS
     Dosage: 5 MG, TWICE A DAY
     Dates: end: 201910
  4. FLECAINIDE [Concomitant]
     Active Substance: FLECAINIDE
     Indication: CARDIAC DISORDER
     Dosage: 75 MG, 2X/DAY
  5. PANTOPRAZOLE [Concomitant]
     Active Substance: PANTOPRAZOLE
     Indication: ABDOMINAL DISCOMFORT
     Dosage: 40 MG, 1X/DAY (40MG EACH MORNING)

REACTIONS (11)
  - Muscle spasms [Not Recovered/Not Resolved]
  - Tremor [Recovered/Resolved]
  - Constipation [Not Recovered/Not Resolved]
  - Skin atrophy [Not Recovered/Not Resolved]
  - Skin disorder [Not Recovered/Not Resolved]
  - Abdominal distension [Not Recovered/Not Resolved]
  - Flatulence [Not Recovered/Not Resolved]
  - Hyperkeratosis [Not Recovered/Not Resolved]
  - Off label use [Unknown]
  - Product use issue [Unknown]
  - Malaise [Recovering/Resolving]

NARRATIVE: CASE EVENT DATE: 2019
